FAERS Safety Report 7619109-4 (Version None)
Quarter: 2011Q3

REPORT INFORMATION
  Report Type: 
  Country: None (occurrence: None)
  Receive Date: 20110718
  Receipt Date: 20110705
  Transmission Date: 20111222
  Serious: Yes (Other)
  Sender: FDA-Public Use
  Company Number: DE-AMGEN-DEUSP2011019530

PATIENT
  Age: 71 Year
  Sex: Female

DRUGS (2)
  1. PROLIA [Suspect]
     Indication: OSTEOPOROSIS POSTMENOPAUSAL
     Dosage: 60 MG, ONE TIME DOSE
     Route: 058
     Dates: start: 20110112
  2. DEKRISTOL [Concomitant]
     Dosage: 20000 IU, Q2WK
     Dates: start: 20050101

REACTIONS (20)
  - PAIN [None]
  - GINGIVAL PAIN [None]
  - MYALGIA [None]
  - PARAESTHESIA [None]
  - JOINT SWELLING [None]
  - FLUID RETENTION [None]
  - DIZZINESS [None]
  - DRY MOUTH [None]
  - FLATULENCE [None]
  - RESTLESSNESS [None]
  - INSOMNIA [None]
  - DEPRESSION [None]
  - BREAST PAIN [None]
  - HYPOAESTHESIA [None]
  - MICTURITION URGENCY [None]
  - PAIN IN EXTREMITY [None]
  - HEADACHE [None]
  - NAUSEA [None]
  - ABDOMINAL PAIN [None]
  - BONE PAIN [None]
